FAERS Safety Report 9683786 (Version 1)
Quarter: 2013Q4

REPORT INFORMATION
  Report Type: Spontaneous
  Country: US (occurrence: None)
  Receive Date: 20131111
  Receipt Date: 20131111
  Transmission Date: 20140711
  Serious: Yes (Other)
  Sender: FDA-Public Use
  Company Number: None

PATIENT
  Age: 11 Year
  Sex: Female
  Weight: 40.37 kg

DRUGS (1)
  1. MEFLOQUINE HYDROCHLORIDE [Suspect]
     Indication: MALARIA PROPHYLAXIS
     Dosage: 3/4 TABLET TAKEN BY MOUTH
     Route: 048
     Dates: start: 20130917, end: 20131001

REACTIONS (10)
  - Anxiety [None]
  - Depressed mood [None]
  - Confusional state [None]
  - Psychiatric symptom [None]
  - Emotional distress [None]
  - Emotional disorder [None]
  - Crying [None]
  - Fear of death [None]
  - Feeling abnormal [None]
  - Dissociative disorder [None]
